FAERS Safety Report 4876705-5 (Version None)
Quarter: 2005Q4

REPORT INFORMATION
  Report Type: 
  Country: None (occurrence: None)
  Receive Date: 20051206
  Receipt Date: 20050810
  Transmission Date: 20060501
  Serious: No
  Sender: FDA-Public Use
  Company Number: USA041184360

PATIENT
  Age: 41 Year
  Sex: Female

DRUGS (6)
  1. CYMBALTA [Suspect]
     Indication: FIBROMYALGIA
     Dosage: 30 MG DAY
     Dates: start: 20041114
  2. ACETAMINOPHEN [Concomitant]
  3. SKELAXIN [Concomitant]
  4. ELAVIL [Concomitant]
  5. EFFEXOR [Concomitant]
  6. PAXIL [Concomitant]

REACTIONS (7)
  - ABDOMINAL DISTENSION [None]
  - DECREASED APPETITE [None]
  - DISTURBANCE IN ATTENTION [None]
  - DRY MOUTH [None]
  - EXCITABILITY [None]
  - FEELING ABNORMAL [None]
  - NAUSEA [None]
